FAERS Safety Report 4477193-3 (Version None)
Quarter: 2004Q4

REPORT INFORMATION
  Report Type: 
  Country: None (occurrence: None)
  Receive Date: 20041018
  Receipt Date: 20041007
  Transmission Date: 20050328
  Serious: Yes (Death, Hospitalization)
  Sender: FDA-Public Use
  Company Number: CL-MERCK-0410CHL00008

PATIENT
  Age: 79 Year
  Sex: Male

DRUGS (1)
  1. VIOXX [Suspect]
     Indication: BACK PAIN
     Route: 048
     Dates: start: 20040601, end: 20040101

REACTIONS (4)
  - ARRHYTHMIA [None]
  - PNEUMONIA [None]
  - PNEUMONITIS [None]
  - RENAL IMPAIRMENT [None]
